FAERS Safety Report 17829885 (Version 2)
Quarter: 2021Q1

REPORT INFORMATION
  Report Type: Report from Study
  Country: CR (occurrence: CR)
  Receive Date: 20200527
  Receipt Date: 20210122
  Transmission Date: 20210419
  Serious: Yes (Other)
  Sender: FDA-Public Use
  Company Number: PHHY2017CR114160

PATIENT
  Sex: Female
  Weight: 45 kg

DRUGS (3)
  1. CLONAZEPAM. [Concomitant]
     Active Substance: CLONAZEPAM
     Indication: SLEEP DISORDER
     Dosage: UNK, AT NIGHT
     Route: 065
  2. GILENYA [Suspect]
     Active Substance: FINGOLIMOD HYDROCHLORIDE
     Indication: RELAPSING MULTIPLE SCLEROSIS
     Dosage: 0.5 MG, QD
     Route: 048
     Dates: start: 20160601
  3. BREWERS YEAST [Concomitant]
     Active Substance: SACCHAROMYCES CEREVISIAE
     Indication: WEIGHT CONTROL
     Route: 065

REACTIONS (28)
  - Fatigue [Unknown]
  - Sensory loss [Recovering/Resolving]
  - Micturition urgency [Recovering/Resolving]
  - Eye irritation [Unknown]
  - Weight decreased [Not Recovered/Not Resolved]
  - Blindness [Unknown]
  - Gait inability [Unknown]
  - Limb discomfort [Unknown]
  - Dental caries [Unknown]
  - Muscle strength abnormal [Unknown]
  - Motor dysfunction [Unknown]
  - Alopecia [Recovered/Resolved]
  - Malaise [Unknown]
  - Fear [Unknown]
  - Paraesthesia [Recovering/Resolving]
  - Bone density decreased [Unknown]
  - Gait disturbance [Unknown]
  - Neck pain [Not Recovered/Not Resolved]
  - Spinal cord injury [Recovering/Resolving]
  - Eating disorder [Not Recovered/Not Resolved]
  - Headache [Not Recovered/Not Resolved]
  - Stress [Unknown]
  - Pain [Recovering/Resolving]
  - Hypoaesthesia [Recovering/Resolving]
  - Spinal disorder [Unknown]
  - Burning sensation [Not Recovered/Not Resolved]
  - Ligament sprain [Unknown]
  - Anal sphincter atony [Unknown]
